FAERS Safety Report 10301978 (Version 1)
Quarter: 2014Q3

REPORT INFORMATION
  Report Type: Spontaneous
  Country: JP (occurrence: None)
  Receive Date: 20140709
  Receipt Date: 20140709
  Transmission Date: 20150326
  Serious: Yes (Hospitalization)
  Sender: FDA-Public Use
  Company Number: 2014HINLIT0600

PATIENT
  Age: 41 Year
  Sex: Male

DRUGS (2)
  1. FINASTERIDE (FINASTERIDE) TABLET, 1MG [Suspect]
     Active Substance: FINASTERIDE
     Indication: ANDROGENETIC ALOPECIA
  2. MINOXIDIL (MINOXIDIL) [Concomitant]
     Active Substance: MINOXIDIL

REACTIONS (1)
  - Cerebrovascular accident [None]
